FAERS Safety Report 16590423 (Version 1)
Quarter: 2019Q3

REPORT INFORMATION
  Report Type: Spontaneous
  Country: US (occurrence: US)
  Receive Date: 20190604
  Receipt Date: 20190604
  Transmission Date: 20191004
  Serious: No
  Sender: FDA-Public Use
  Company Number: None

PATIENT
  Age: 65 Year
  Sex: Female

DRUGS (1)
  1. ENBREL [Suspect]
     Active Substance: ETANERCEPT
     Indication: RHEUMATOID ARTHRITIS
     Dosage: INJECT 150MG SUBCUTANEOUSLY ONCE  WEEKLY  USING THE AUTO TOUCH DEVICE  IN THE ABDOMEN THIGH OR OUTER
     Route: 058
     Dates: start: 201902

REACTIONS (3)
  - Dyspepsia [None]
  - Fatigue [None]
  - Abdominal pain upper [None]
